FAERS Safety Report 15618193 (Version 3)
Quarter: 2019Q1

REPORT INFORMATION
  Report Type: Report from Study
  Country: US (occurrence: US)
  Receive Date: 20181114
  Receipt Date: 20190211
  Transmission Date: 20190417
  Serious: Yes (Other)
  Sender: FDA-Public Use
  Company Number: US-ACTELION-A-NJ2018-174662

PATIENT
  Age: 46 Year
  Sex: Female
  Weight: 86.17 kg

DRUGS (2)
  1. OPSUMIT [Suspect]
     Active Substance: MACITENTAN
     Indication: PULMONARY ARTERIAL HYPERTENSION
     Dosage: 10 MG, QD
     Route: 048
  2. REVATIO [Concomitant]
     Active Substance: SILDENAFIL CITRATE

REACTIONS (16)
  - Dyspnoea [Unknown]
  - Dialysis [Unknown]
  - Dizziness postural [Unknown]
  - Ascites [Unknown]
  - Diverticulitis [Unknown]
  - Condition aggravated [Unknown]
  - Chest pain [Unknown]
  - Palpitations [Unknown]
  - Dyspnoea at rest [Unknown]
  - Abdominal distension [Unknown]
  - Cough [Unknown]
  - Chest discomfort [Unknown]
  - Dyspnoea exertional [Unknown]
  - Exercise tolerance decreased [Unknown]
  - Fatigue [Unknown]
  - Influenza like illness [Unknown]

NARRATIVE: CASE EVENT DATE: 2018
